FAERS Safety Report 22166139 (Version 1)
Quarter: 2023Q1

REPORT INFORMATION
  Report Type: Spontaneous
  Country: US (occurrence: None)
  Receive Date: 20230331
  Receipt Date: 20230331
  Transmission Date: 20230417
  Serious: Yes (Other)
  Sender: FDA-Public Use
  Company Number: None

PATIENT
  Age: 96 Year
  Sex: Male

DRUGS (2)
  1. LEVULAN KERASTICK [Suspect]
     Active Substance: AMINOLEVULINIC ACID HYDROCHLORIDE
     Dosage: FREQUENCY : AS NEEDED;?
     Route: 061
     Dates: start: 20230320, end: 20230320
  2. blue light treatment [Concomitant]
     Dates: start: 20230320, end: 20230320

REACTIONS (1)
  - Chemical burn [None]

NARRATIVE: CASE EVENT DATE: 20230320
